FAERS Safety Report 8548797-3 (Version None)
Quarter: 2012Q3

REPORT INFORMATION
  Report Type: 
  Country: None (occurrence: None)
  Receive Date: 20120730
  Receipt Date: 20120719
  Transmission Date: 20120928
  Serious: Yes (Other)
  Sender: FDA-Public Use
  Company Number: US-BRISTOL-MYERS SQUIBB COMPANY-16761231

PATIENT
  Age: 58 Year
  Sex: Male

DRUGS (2)
  1. ORENCIA [Suspect]
     Dosage: STARTED IV IN AUG/SEP11,INTERRUPTED ON 19DEC11. SC 24MAY12.LAST DOSE ON 19JUL2012.
     Route: 058
     Dates: start: 20110101
  2. METHOTREXATE [Concomitant]
     Dosage: DISCONTINUED 3 WEEKS AGO

REACTIONS (2)
  - ADVERSE EVENT [None]
  - LIVER FUNCTION TEST ABNORMAL [None]
